FAERS Safety Report 6533070-5 (Version None)
Quarter: 2010Q1

REPORT INFORMATION
  Report Type: 
  Country: None (occurrence: None)
  Receive Date: 20100111
  Receipt Date: 20091002
  Transmission Date: 20100710
  Serious: Yes (Other)
  Sender: FDA-Public Use
  Company Number: IE-CELGENEUS-229-20484-09121756

PATIENT
  Sex: Male
  Weight: 2.2 kg

DRUGS (7)
  1. INNOHEP [Suspect]
     Route: 064
     Dates: start: 20030802, end: 20031010
  2. METHADONE [Concomitant]
     Route: 064
     Dates: start: 20030106, end: 20031010
  3. FLOXACILLIN SODIUM [Concomitant]
     Route: 064
     Dates: start: 20030912, end: 20030917
  4. CALVAPEN [Concomitant]
     Route: 064
     Dates: start: 20030912, end: 20030917
  5. PARACETAMOL [Concomitant]
     Route: 064
     Dates: start: 20030912, end: 20030917
  6. AMITRIPTYLINE HCL [Concomitant]
     Route: 064
     Dates: start: 20030106, end: 20031010
  7. DIAZEPAM [Concomitant]
     Route: 064
     Dates: start: 20030106, end: 20031010

REACTIONS (2)
  - DRUG EXPOSURE DURING PREGNANCY [None]
  - PREMATURE BABY [None]
